FAERS Safety Report 5447655-0 (Version None)
Quarter: 2007Q3

REPORT INFORMATION
  Report Type: 
  Country: None (occurrence: None)
  Receive Date: 20070910
  Receipt Date: 20070827
  Transmission Date: 20080115
  Serious: Yes (Congenital Anomaly, Other)
  Sender: FDA-Public Use
  Company Number: PHEH2007US11961

PATIENT

DRUGS (2)
  1. FOLIC ACID [Concomitant]
     Route: 064
  2. TEGRETOL [Suspect]
     Route: 064

REACTIONS (6)
  - ACROCHORDON [None]
  - CAESAREAN SECTION [None]
  - CONGENITAL SCOLIOSIS [None]
  - DRUG EXPOSURE DURING PREGNANCY [None]
  - HEMIVERTEBRA [None]
  - PREMATURE BABY [None]
